FAERS Safety Report 21319873 (Version 2)
Quarter: 2022Q4

REPORT INFORMATION
  Report Type: Spontaneous
  Country: US (occurrence: US)
  Receive Date: 20220911
  Receipt Date: 20221207
  Transmission Date: 20230112
  Serious: No
  Sender: FDA-Public Use
  Company Number: US-SA-SAC20220906000057

PATIENT
  Sex: Female

DRUGS (1)
  1. DUPIXENT [Suspect]
     Active Substance: DUPILUMAB
     Dosage: 200 MG, FREQUENCY: OTHER
     Route: 058

REACTIONS (5)
  - Lacrimation increased [Unknown]
  - Fatigue [Unknown]
  - Dry eye [Recovering/Resolving]
  - Arthralgia [Unknown]
  - Inappropriate schedule of product administration [Unknown]
